FAERS Safety Report 14498873 (Version 2)
Quarter: 2018Q1

REPORT INFORMATION
  Report Type: Spontaneous
  Country: US (occurrence: US)
  Receive Date: 20180207
  Receipt Date: 20180212
  Transmission Date: 20180509
  Serious: Yes (Other)
  Sender: FDA-Public Use
  Company Number: US-PFIZER INC-2018052274

PATIENT
  Age: 73 Year
  Sex: Female
  Weight: 120 kg

DRUGS (2)
  1. REVATIO [Suspect]
     Active Substance: SILDENAFIL CITRATE
     Indication: LUNG DISORDER
     Dosage: 20MG TABLET BY MOUTH THREE TIMES A DAY
     Route: 048
  2. LYRICA [Concomitant]
     Active Substance: PREGABALIN
     Indication: NEURALGIA
     Dosage: 100MG CAPSULE, TAKES 5 CAPSULES A DAY

REACTIONS (4)
  - Pain [Unknown]
  - Wrist fracture [Unknown]
  - Eyelid disorder [Unknown]
  - Eye disorder [Not Recovered/Not Resolved]

NARRATIVE: CASE EVENT DATE: 2014
